FAERS Safety Report 24010916 (Version 1)
Quarter: 2024Q2

REPORT INFORMATION
  Report Type: Spontaneous
  Country: TW (occurrence: TW)
  Receive Date: 20240625
  Receipt Date: 20240625
  Transmission Date: 20240716
  Serious: Yes (Other)
  Sender: FDA-Public Use
  Company Number: TW-PFIZER INC-PV202400082729

PATIENT
  Age: 60 Year
  Sex: Male

DRUGS (1)
  1. XELJANZ XR [Suspect]
     Active Substance: TOFACITINIB CITRATE
     Indication: Psoriatic arthropathy
     Dosage: 11 MG, QD
     Route: 048
     Dates: start: 20240603, end: 20240624

REACTIONS (4)
  - Melaena [Unknown]
  - Gastrointestinal inflammation [Unknown]
  - Gastrointestinal ulcer [Unknown]
  - Pyrexia [Unknown]
